FAERS Safety Report 5042889-1 (Version None)
Quarter: 2006Q3

REPORT INFORMATION
  Report Type: 
  Country: None (occurrence: None)
  Receive Date: 20060705
  Receipt Date: 20060508
  Transmission Date: 20061208
  Serious: Yes (Other)
  Sender: FDA-Public Use
  Company Number: DE-GLAXOSMITHKLINE-D0049652A

PATIENT
  Age: 75 Year
  Sex: Male

DRUGS (5)
  1. LAMICTAL [Suspect]
     Indication: EPILEPSY
     Route: 065
     Dates: start: 20041201
  2. ACIMETHIN [Concomitant]
     Route: 065
  3. ANGOCIN [Concomitant]
     Route: 065
  4. BOTOX [Concomitant]
     Route: 065
  5. DICLOFENAC [Concomitant]
     Route: 065

REACTIONS (11)
  - ALOPECIA [None]
  - ANOREXIA [None]
  - CONVULSION [None]
  - EXCESSIVE EYE BLINKING [None]
  - EYE DISCHARGE [None]
  - FATIGUE [None]
  - HALLUCINATION [None]
  - LOGORRHOEA [None]
  - MOVEMENT DISORDER [None]
  - MYOTONIA [None]
  - NIGHTMARE [None]
